FAERS Safety Report 9503401 (Version 1)
Quarter: 2013Q3

REPORT INFORMATION
  Report Type: Spontaneous
  Country: TR (occurrence: TR)
  Receive Date: 20130906
  Receipt Date: 20130906
  Transmission Date: 20140515
  Serious: Yes (Hospitalization)
  Sender: FDA-Public Use
  Company Number: TR-VERTEX PHARMACEUTICALS INC-2013-009328

PATIENT
  Age: 58 Year
  Sex: Male
  Weight: 95 kg

DRUGS (3)
  1. INCIVO [Suspect]
     Indication: CHRONIC HEPATITIS C
     Dosage: 750 MG, TID
     Route: 048
     Dates: start: 20130606, end: 20130812
  2. PEGINTERFERON ALFA [Concomitant]
     Indication: CHRONIC HEPATITIS C
     Dosage: DOSAGE FORM: UNSPECIFIED
     Route: 065
     Dates: start: 20130606, end: 20130812
  3. RIBAVIRIN [Concomitant]
     Indication: CHRONIC HEPATITIS C
     Dosage: DOSAGE FORM: UNSPECIFIED
     Dates: start: 20130606, end: 20130812

REACTIONS (1)
  - Drug reaction with eosinophilia and systemic symptoms [Recovered/Resolved]
